FAERS Safety Report 24423904 (Version 4)
Quarter: 2025Q2

REPORT INFORMATION
  Report Type: Spontaneous
  Country: US (occurrence: US)
  Receive Date: 20241010
  Receipt Date: 20250522
  Transmission Date: 20250716
  Serious: No
  Sender: SANOFI AVENTIS
  Company Number: US-SA-2024SA292361

PATIENT
  Age: 5 Year
  Sex: Male

DRUGS (3)
  1. ELOCTATE [Suspect]
     Active Substance: EFMOROCTOCOG ALFA
     Indication: Haemorrhage
     Dosage: 260 IU (+/-10%) , BIW
  2. ELOCTATE [Suspect]
     Active Substance: EFMOROCTOCOG ALFA
  3. ELOCTATE [Suspect]
     Active Substance: EFMOROCTOCOG ALFA
     Route: 042

REACTIONS (5)
  - Bite [Recovered/Resolved]
  - Haemorrhage [Recovered/Resolved]
  - Contusion [Unknown]
  - Contusion [Unknown]
  - Haematoma [Unknown]

NARRATIVE: CASE EVENT DATE: 20240921
